FAERS Safety Report 25381403 (Version 2)
Quarter: 2025Q3

REPORT INFORMATION
  Report Type: Spontaneous
  Country: US (occurrence: US)
  Receive Date: 20250530
  Receipt Date: 20250826
  Transmission Date: 20251020
  Serious: No
  Sender: INSUD PHARMA
  Company Number: US-INSUD PHARMA-2505US03815

PATIENT

DRUGS (3)
  1. SLYND [Suspect]
     Active Substance: DROSPIRENONE
     Indication: Heavy menstrual bleeding
     Route: 048
     Dates: start: 202502
  2. SLYND [Suspect]
     Active Substance: DROSPIRENONE
     Indication: Menstrual cycle management
  3. SLYND [Suspect]
     Active Substance: DROSPIRENONE
     Indication: Contraception

REACTIONS (3)
  - Headache [Not Recovered/Not Resolved]
  - Amenorrhoea [Recovering/Resolving]
  - Product use in unapproved indication [Unknown]

NARRATIVE: CASE EVENT DATE: 20250301
